FAERS Safety Report 7993539-3 (Version None)
Quarter: 2011Q4

REPORT INFORMATION
  Report Type: 
  Country: None (occurrence: None)
  Receive Date: 20111219
  Receipt Date: 20111213
  Transmission Date: 20120403
  Serious: Yes (Hospitalization, Other)
  Sender: FDA-Public Use
  Company Number: US-AMGEN-USASP2011059633

PATIENT
  Age: 55 Year
  Sex: Female

DRUGS (2)
  1. HUMIRA [Concomitant]
     Dosage: UNK
     Dates: start: 20040101, end: 20050101
  2. ENBREL [Suspect]
     Indication: RHEUMATOID ARTHRITIS
     Dosage: 25 MG, UNK
     Dates: start: 19990601, end: 20111101

REACTIONS (7)
  - LUNG NEOPLASM [None]
  - INFECTION [None]
  - AUTONOMIC NEUROPATHY [None]
  - NEUROPATHY PERIPHERAL [None]
  - GASTROINTESTINAL DISORDER [None]
  - RHEUMATOID ARTHRITIS [None]
  - HEADACHE [None]
